FAERS Safety Report 8345136-8 (Version None)
Quarter: 2012Q2

REPORT INFORMATION
  Report Type: 
  Country: None (occurrence: None)
  Receive Date: 20120402
  Receipt Date: 20111219
  Transmission Date: 20120825
  Serious: Yes (Other)
  Sender: FDA-Public Use
  Company Number: 314078USA

PATIENT
  Age: 50 Year
  Sex: Female

DRUGS (1)
  1. AMOXICILLIN [Suspect]
     Indication: PRODUCT USED FOR UNKNOWN INDICATION
     Dosage: 2000 MG (500 MG, 4 IN 1 D)
     Dates: start: 20110913

REACTIONS (8)
  - SWELLING FACE [None]
  - HYPERSENSITIVITY [None]
  - SWELLING [None]
  - RASH [None]
  - LIP SWELLING [None]
  - PRURITUS [None]
  - PAIN IN EXTREMITY [None]
  - SWOLLEN TONGUE [None]
